FAERS Safety Report 20366939 (Version 1)
Quarter: 2022Q1

REPORT INFORMATION
  Report Type: Spontaneous
  Country: US (occurrence: US)
  Receive Date: 20220123
  Receipt Date: 20220123
  Transmission Date: 20220424
  Serious: No
  Sender: FDA-Public Use
  Company Number: US-BIOGEN-2021BI01050359

PATIENT
  Sex: Female

DRUGS (8)
  1. AMPYRA [Suspect]
     Active Substance: DALFAMPRIDINE
     Indication: Gait disturbance
     Dosage: UNK
     Route: 065
  2. AVONEX [Suspect]
     Active Substance: INTERFERON BETA-1A
     Indication: Multiple sclerosis
     Dosage: 30 MICROGRAM, WEEKLY
     Route: 030
     Dates: start: 20210809, end: 202112
  3. AVONEX [Suspect]
     Active Substance: INTERFERON BETA-1A
     Dosage: UNK, WEEKLY
     Route: 030
     Dates: start: 20140305, end: 20150207
  4. AVONEX [Suspect]
     Active Substance: INTERFERON BETA-1A
     Dosage: UNK
     Route: 065
     Dates: start: 20211016
  5. AVONEX [Suspect]
     Active Substance: INTERFERON BETA-1A
     Dosage: UNK
  6. CANNABIDIOL [Concomitant]
     Active Substance: CANNABIDIOL
     Indication: Product used for unknown indication
     Dosage: UNK
     Route: 065
  7. OTHER THERAPEUTIC PRODUCTS ^Medication for neuropathy pain^ [Concomitant]
     Indication: Neuralgia
     Dosage: UNK
     Route: 065
  8. OTHER THERAPEUTIC PRODUCTS ^Medication to help patient walk^ [Concomitant]
     Indication: Gait disturbance
     Dosage: UNK
     Route: 065

REACTIONS (7)
  - Renal pain [Unknown]
  - Hypoaesthesia [Unknown]
  - Muscle spasms [Unknown]
  - Influenza like illness [Recovered/Resolved]
  - Adverse event [None]
  - Back pain [Recovered/Resolved]
  - Upper respiratory tract infection [Not Recovered/Not Resolved]
